FAERS Safety Report 9585208 (Version 4)
Quarter: 2014Q2

REPORT INFORMATION
  Report Type: Spontaneous
  Country: US (occurrence: US)
  Receive Date: 20131002
  Receipt Date: 20140414
  Transmission Date: 20141212
  Serious: Yes (Other)
  Sender: FDA-Public Use
  Company Number: US-AMGEN-USASP2013063130

PATIENT
  Age: 57 Year
  Sex: Female

DRUGS (1)
  1. ENBREL [Suspect]
     Indication: PSORIATIC ARTHROPATHY
     Dosage: 50 MG ONCE WEEKLY
     Route: 065
     Dates: start: 20130909, end: 201310

REACTIONS (6)
  - Postmenopausal haemorrhage [Recovered/Resolved]
  - Eye pain [Recovered/Resolved]
  - Ocular hyperaemia [Recovered/Resolved]
  - Dry eye [Recovered/Resolved]
  - Injection site reaction [Unknown]
  - Inappropriate schedule of drug administration [Not Recovered/Not Resolved]
